FAERS Safety Report 4575134-1 (Version None)
Quarter: 2005Q1

REPORT INFORMATION
  Report Type: 
  Country: None (occurrence: None)
  Receive Date: 20050208
  Receipt Date: 20050204
  Transmission Date: 20050727
  Serious: Yes (Hospitalization)
  Sender: FDA-Public Use
  Company Number: FR-MERCK-0502FRA00012

PATIENT
  Age: 81 Year
  Sex: Male

DRUGS (6)
  1. STROMECTOL [Suspect]
     Route: 048
     Dates: end: 20041230
  2. TRAMADOL HYDROCHLORIDE [Suspect]
     Route: 048
     Dates: end: 20041230
  3. ASPIRIN LYSINE [Suspect]
     Route: 048
     Dates: end: 20041230
  4. ENOXAPARIN SODIUM [Suspect]
     Route: 058
     Dates: end: 20041230
  5. ALFUZOSIN HYDROCHLORIDE [Suspect]
     Route: 048
     Dates: end: 20041230
  6. SPIRONOLACTONE [Suspect]
     Route: 048
     Dates: end: 20041230

REACTIONS (1)
  - SUBDURAL HAEMATOMA [None]
